FAERS Safety Report 13576017 (Version 2)
Quarter: 2018Q2

REPORT INFORMATION
  Report Type: Spontaneous
  Country: US (occurrence: US)
  Receive Date: 20170524
  Receipt Date: 20180510
  Transmission Date: 20180711
  Serious: No
  Sender: FDA-Public Use
  Company Number: US-PFIZER INC-2017226342

PATIENT
  Age: 73 Year
  Sex: Female
  Weight: 75.75 kg

DRUGS (2)
  1. IBUPROFEN. [Suspect]
     Active Substance: IBUPROFEN
     Indication: ARTHRITIS
     Dosage: 800 MG, 2X/DAY
     Dates: end: 2017
  2. IBUPROFEN. [Suspect]
     Active Substance: IBUPROFEN
     Indication: SCIATICA

REACTIONS (2)
  - Overdose [Unknown]
  - Drug ineffective [Unknown]
